FAERS Safety Report 14576956 (Version 1)
Quarter: 2018Q1

REPORT INFORMATION
  Report Type: Spontaneous
  Country: US (occurrence: US)
  Receive Date: 20180225
  Receipt Date: 20180225
  Transmission Date: 20180509
  Serious: Yes (Other)
  Sender: FDA-Public Use
  Company Number: None

PATIENT
  Age: 21 Year
  Sex: Female
  Weight: 57 kg

DRUGS (5)
  1. NEXPLANON [Suspect]
     Active Substance: ETONOGESTREL
     Indication: CONTRACEPTION
     Dosage: ?          QUANTITY:1 IMPLANT;OTHER FREQUENCY:ONE IN THREE YEARS;?
     Route: 058
     Dates: start: 20170526, end: 20180225
  2. ZINC. [Concomitant]
     Active Substance: ZINC
  3. VITAMIN D [Concomitant]
     Active Substance: CHOLECALCIFEROL
  4. PRIMROSE OIL [Concomitant]
  5. OMEPRAZOLE. [Concomitant]
     Active Substance: OMEPRAZOLE

REACTIONS (9)
  - Depression [None]
  - Acne [None]
  - Scar [None]
  - Libido decreased [None]
  - Anxiety [None]
  - Abdominal pain upper [None]
  - Haemorrhage [None]
  - Mood swings [None]
  - Dyspareunia [None]

NARRATIVE: CASE EVENT DATE: 20170831
